FAERS Safety Report 5758296-X (Version None)
Quarter: 2008Q2

REPORT INFORMATION
  Report Type: 
  Country: None (occurrence: None)
  Receive Date: 20080602
  Receipt Date: 20080602
  Transmission Date: 20081010
  Serious: Yes (Hospitalization)
  Sender: FDA-Public Use
  Company Number: None

PATIENT
  Sex: Female
  Weight: 78.9 kg

DRUGS (1)
  1. CUBICIN [Suspect]
     Indication: ENDOCARDITIS
     Dosage: 450MG  QD IV
     Route: 042
     Dates: start: 20080508, end: 20080526

REACTIONS (3)
  - BLOOD CREATINE PHOSPHOKINASE INCREASED [None]
  - MUSCLE SPASMS [None]
  - MUSCULAR WEAKNESS [None]
